FAERS Safety Report 9028653 (Version 1)
Quarter: 2013Q1

REPORT INFORMATION
  Report Type: Spontaneous
  Country: MX (occurrence: MX)
  Receive Date: 20130124
  Receipt Date: 20130124
  Transmission Date: 20140127
  Serious: Yes (Other)
  Sender: FDA-Public Use
  Company Number: PHHY2013MX006307

PATIENT
  Age: 78 None
  Sex: Female

DRUGS (3)
  1. RASILEZ HCT [Suspect]
     Indication: HYPERTENSION
     Dosage: 1 DF (150 MG ALISK/ 12,5 MG HYDRO) DAILY
     Route: 048
     Dates: start: 200801
  2. DIOVAN [Suspect]
     Dosage: 1 DF, UNK
     Dates: start: 200701
  3. TAFIL [Concomitant]
     Dosage: 0.5 DF, DAILY
     Dates: start: 200901

REACTIONS (3)
  - Typhoid fever [Not Recovered/Not Resolved]
  - Colitis [Not Recovered/Not Resolved]
  - Gastritis [Not Recovered/Not Resolved]
